FAERS Safety Report 4448930-9 (Version None)
Quarter: 2004Q3

REPORT INFORMATION
  Report Type: 
  Country: None (occurrence: None)
  Receive Date: 20040909
  Receipt Date: 20040825
  Transmission Date: 20050211
  Serious: Yes (Hospitalization)
  Sender: FDA-Public Use
  Company Number: 2004228981US

PATIENT
  Age: 69 Year
  Sex: Male
  Weight: 102.5 kg

DRUGS (11)
  1. ESTRACYT(ESTRAMUSTINE PHOSPHATE)CAPSULE [Suspect]
     Indication: PROSTATE CANCER
     Dosage: 280 MG, TID X 14 DAYS, ORAL
     Route: 048
     Dates: start: 20040609, end: 20040730
  2. PACLITAXEL [Suspect]
     Indication: PROSTATE CANCER
     Dosage: 290 MG, CYCLIC, IV
     Route: 042
     Dates: start: 20040610, end: 20040727
  3. ETOPOSIDE [Suspect]
     Indication: PROSTATE CANCER
     Dosage: 50 MG, BID X 14 DAYS, ORAL
     Route: 048
     Dates: start: 20040609, end: 20040730
  4. COUMADIN [Concomitant]
  5. ATIVAN [Concomitant]
  6. LYCOPENE [Concomitant]
  7. SELENIUM TRACE METAL ADDITIVE [Concomitant]
  8. VITAMIN A [Concomitant]
  9. FLOMAX [Concomitant]
  10. MULTIVITAMINS (PANTHENOL, RETINOL, ERGOCALCIFEROL) [Concomitant]
  11. LUPRON [Concomitant]

REACTIONS (10)
  - DIPLOPIA [None]
  - DISEASE RECURRENCE [None]
  - DIZZINESS [None]
  - HYPOAESTHESIA [None]
  - HYPOAESTHESIA ORAL [None]
  - OEDEMA PERIPHERAL [None]
  - PARAESTHESIA [None]
  - PARAESTHESIA ORAL [None]
  - TRANSIENT ISCHAEMIC ATTACK [None]
  - VERTIGO [None]
